FAERS Safety Report 10977740 (Version 1)
Quarter: 2015Q1

REPORT INFORMATION
  Report Type: Spontaneous
  Country: US (occurrence: None)
  Receive Date: 20150226
  Receipt Date: 20150226
  Transmission Date: 20150721
  Serious: No
  Sender: FDA-Public Use
  Company Number: TPA2009A03494

PATIENT
  Age: 80 Year
  Sex: Female

DRUGS (9)
  1. INSULIN [Concomitant]
     Active Substance: INSULIN NOS
  2. LASIX [Concomitant]
     Active Substance: FUROSEMIDE
  3. ADVAIR DISKUS [Concomitant]
     Active Substance: FLUTICASONE PROPIONATE\SALMETEROL XINAFOATE
  4. ULORIC [Suspect]
     Active Substance: FEBUXOSTAT
     Indication: GOUT
     Dosage: 40 MG, 1 IN 1 D, PER ORAL
     Route: 048
     Dates: start: 200910, end: 200910
  5. GLIPIZIDE. [Concomitant]
     Active Substance: GLIPIZIDE
  6. COMBIVENT (IPRATROPIUM BROMIDE, SALBUTAMOL SULFATE)? [Concomitant]
  7. LIPITOR (ATORVASTATIN ) [Concomitant]
  8. COZAAR [Concomitant]
     Active Substance: LOSARTAN POTASSIUM
  9. COLCHICINE. [Concomitant]
     Active Substance: COLCHICINE

REACTIONS (1)
  - Swelling face [None]

NARRATIVE: CASE EVENT DATE: 200910
